FAERS Safety Report 9110152 (Version 1)
Quarter: 2013Q1

REPORT INFORMATION
  Report Type: Report from Study
  Country: US (occurrence: US)
  Receive Date: 20130222
  Receipt Date: 20130222
  Transmission Date: 20140127
  Serious: Yes (Other)
  Sender: FDA-Public Use
  Company Number: US-ROCHE-1191201

PATIENT
  Sex: 0

DRUGS (9)
  1. MYCOPHENOLATE MOFETIL [Suspect]
     Indication: PROPHYLAXIS AGAINST TRANSPLANT REJECTION
     Dosage: PRE OPERATIVELY
     Route: 042
  2. MYCOPHENOLATE MOFETIL [Suspect]
     Dosage: FOR THE FIRST 48 HRS POST OPERATIVE
     Route: 042
  3. MYCOPHENOLATE MOFETIL [Suspect]
     Route: 048
  4. DACLIZUMAB [Suspect]
     Indication: PROPHYLAXIS AGAINST TRANSPLANT REJECTION
     Route: 065
  5. TACROLIMUS [Suspect]
     Indication: PROPHYLAXIS AGAINST TRANSPLANT REJECTION
     Route: 048
  6. PREDNISONE [Suspect]
     Indication: PROPHYLAXIS AGAINST TRANSPLANT REJECTION
     Route: 065
  7. GANCICLOVIR [Concomitant]
     Indication: ANTIVIRAL PROPHYLAXIS
     Route: 042
  8. VALGANCICLOVIR [Concomitant]
     Indication: ANTIVIRAL PROPHYLAXIS
     Route: 048
  9. SULFAMETHOXAZOLE/TRIMETHOPRIM [Concomitant]
     Indication: ANTIFUNGAL PROPHYLAXIS

REACTIONS (21)
  - Anaemia [Unknown]
  - Neutropenia [Unknown]
  - Diarrhoea [Unknown]
  - Peritonitis [Unknown]
  - Pyelonephritis [Unknown]
  - Urinary tract infection [Unknown]
  - Gastroenteritis [Unknown]
  - Cytomegalovirus infection [Unknown]
  - Pneumonia [Unknown]
  - Herpes zoster [Unknown]
  - Dehydration [Unknown]
  - Hyperkalaemia [Unknown]
  - Hypertension [Unknown]
  - Urinary tract disorder [Unknown]
  - Musculoskeletal disorder [Unknown]
  - Connective tissue disorder [Unknown]
  - Skin disorder [Unknown]
  - Nervous system disorder [Unknown]
  - Diabetes mellitus [Unknown]
  - Viraemia [Unknown]
  - Polyomavirus-associated nephropathy [Unknown]
